FAERS Safety Report 25034855 (Version 1)
Quarter: 2025Q1

REPORT INFORMATION
  Report Type: Spontaneous
  Country: US (occurrence: US)
  Receive Date: 20250304
  Receipt Date: 20250304
  Transmission Date: 20250409
  Serious: Yes (Other)
  Sender: EMCURE PHARMACEUTICALS LTD
  Company Number: US-AVET LIFESCIENCES LTD-2025-AVET-000053

PATIENT
  Age: 10 Year
  Sex: Male

DRUGS (2)
  1. LISINOPRIL [Interacting]
     Active Substance: LISINOPRIL
     Indication: Hypertension
  2. TIZANIDINE [Interacting]
     Active Substance: TIZANIDINE
     Indication: Muscle spasticity

REACTIONS (2)
  - Drug interaction [Unknown]
  - Hypotension [Unknown]
